FAERS Safety Report 6423136-2 (Version None)
Quarter: 2009Q4

REPORT INFORMATION
  Report Type: 
  Country: None (occurrence: None)
  Receive Date: 20091102
  Receipt Date: 20091023
  Transmission Date: 20100525
  Serious: Yes (Other)
  Sender: FDA-Public Use
  Company Number: GB-AVENTIS-200922055GDDC

PATIENT
  Sex: Female

DRUGS (3)
  1. TAXOTERE [Suspect]
     Dosage: DOSE: UNK
     Route: 042
  2. ZOMETA [Concomitant]
  3. HERCEPTIN [Concomitant]

REACTIONS (1)
  - PSORIASIS [None]
